FAERS Safety Report 5140171-5 (Version None)
Quarter: 2006Q4

REPORT INFORMATION
  Report Type: 
  Country: None (occurrence: None)
  Receive Date: 20061031
  Receipt Date: 20061023
  Transmission Date: 20070319
  Serious: Yes (Other)
  Sender: FDA-Public Use
  Company Number: ES-BRISTOL-MYERS SQUIBB COMPANY-13551221

PATIENT
  Age: 31 Year
  Sex: Male

DRUGS (4)
  1. DOXORUBICIN HCL [Suspect]
     Indication: HODGKIN'S DISEASE
  2. BLEOMYCIN [Suspect]
     Indication: HODGKIN'S DISEASE
  3. DACARBAZINE [Concomitant]
     Indication: HODGKIN'S DISEASE
  4. VINBLASTINE [Concomitant]
     Indication: HODGKIN'S DISEASE

REACTIONS (1)
  - TELANGIECTASIA [None]
